FAERS Safety Report 4822350-7 (Version None)
Quarter: 2005Q4

REPORT INFORMATION
  Report Type: 
  Country: None (occurrence: None)
  Receive Date: 20051104
  Receipt Date: 20051028
  Transmission Date: 20060501
  Serious: Yes (Other)
  Sender: FDA-Public Use
  Company Number: 200513443GDS

PATIENT
  Age: 68 Year
  Sex: Male
  Weight: 60 kg

DRUGS (15)
  1. FAMOTIDINE [Suspect]
     Indication: GASTRIC ULCER
     Dosage: SEE IMAGE
     Route: 042
     Dates: start: 20040513, end: 20040515
  2. FAMOTIDINE [Suspect]
     Indication: PROPHYLAXIS
     Dosage: SEE IMAGE
     Route: 042
     Dates: start: 20040513, end: 20040515
  3. FAMOTIDINE [Suspect]
     Indication: GASTRIC ULCER
     Dosage: SEE IMAGE
     Route: 042
     Dates: start: 20040516, end: 20040606
  4. FAMOTIDINE [Suspect]
     Indication: PROPHYLAXIS
     Dosage: SEE IMAGE
     Route: 042
     Dates: start: 20040516, end: 20040606
  5. TICLOPIDINE HCL [Suspect]
     Indication: EMBOLISM
     Dosage: 100 MG , TOTAL DAILY, ORAL
     Route: 048
     Dates: start: 20040513, end: 20040606
  6. TICLOPIDINE HCL [Suspect]
     Indication: PROPHYLAXIS
     Dosage: 100 MG , TOTAL DAILY, ORAL
     Route: 048
     Dates: start: 20040513, end: 20040606
  7. ASPIRIN [Suspect]
     Indication: THROMBOSIS PROPHYLAXIS
     Dosage: 100 MG, TOTAL DAILY, ORAL
     Route: 048
     Dates: start: 20040513
  8. CANDESARTAN [Concomitant]
  9. NICORANDIL [Concomitant]
  10. SPIRONOLACTONE [Concomitant]
  11. CLILOSTAZOL [Concomitant]
  12. CEFOTAXIM [Concomitant]
  13. GABEXATE MESILATE [Concomitant]
  14. MEROPENEM [Concomitant]
  15. MYNOCYCLINE [Concomitant]

REACTIONS (4)
  - NEUTROPENIA [None]
  - PANCYTOPENIA [None]
  - PYREXIA [None]
  - THROMBOCYTOPENIA [None]
